FAERS Safety Report 4668689-X (Version None)
Quarter: 2005Q2

REPORT INFORMATION
  Report Type: 
  Country: None (occurrence: None)
  Receive Date: 20050519
  Receipt Date: 20050504
  Transmission Date: 20051028
  Serious: Yes (Hospitalization, Other)
  Sender: FDA-Public Use
  Company Number: 2005-01495

PATIENT
  Age: 39 Year
  Sex: Female

DRUGS (2)
  1. FERRLECIT [Suspect]
     Indication: MICROCYTIC ANAEMIA
     Dosage: 40 MG, INTRAVENOUS
     Route: 042
     Dates: start: 20050420, end: 20050420
  2. LEIOS (ETHINYLESTRADIOL) [Concomitant]

REACTIONS (4)
  - DYSARTHRIA [None]
  - FACIAL PARESIS [None]
  - INTENTIONAL MISUSE [None]
  - MIGRAINE [None]
